FAERS Safety Report 6423922-9 (Version None)
Quarter: 2009Q4

REPORT INFORMATION
  Report Type: 
  Country: None (occurrence: None)
  Receive Date: 20091102
  Receipt Date: 20091019
  Transmission Date: 20100525
  Serious: Yes (Hospitalization, Other)
  Sender: FDA-Public Use
  Company Number: PHHY2009BR45247

PATIENT
  Sex: Female
  Weight: 80 kg

DRUGS (2)
  1. FORASEQ [Suspect]
     Indication: DYSPNOEA
     Dosage: 12/400 MCG, TWICE A DAY
  2. TEOLONG [Concomitant]
     Indication: DYSPNOEA
     Dosage: 200 MG, 1 TABLET IN THE MORNING AND AT NIGHT.
     Route: 048

REACTIONS (12)
  - BACK PAIN [None]
  - BEDRIDDEN [None]
  - CONFUSIONAL STATE [None]
  - ERYTHEMA [None]
  - FALL [None]
  - FOOT FRACTURE [None]
  - FOOT OPERATION [None]
  - MEMORY IMPAIRMENT [None]
  - MOVEMENT DISORDER [None]
  - OEDEMA PERIPHERAL [None]
  - PAIN IN EXTREMITY [None]
  - SLEEP DISORDER [None]
